FAERS Safety Report 9033273 (Version 1)
Quarter: 2013Q1

REPORT INFORMATION
  Report Type: Spontaneous
  Country: US (occurrence: US)
  Receive Date: 20130128
  Receipt Date: 20130128
  Transmission Date: 20140127
  Serious: Yes (Other)
  Sender: FDA-Public Use
  Company Number: US-BAYER-2013-010784

PATIENT
  Age: 77 Year
  Sex: Female
  Weight: 58.96 kg

DRUGS (6)
  1. BAYER CHEWABLE LOW DOSE BABY ASPIRIN TABLET CHERRY [Suspect]
     Indication: ISCHAEMIC HEART DISEASE PROPHYLAXIS
     Dosage: 1 DF, QD
     Route: 048
     Dates: start: 2011, end: 201212
  2. NEXIUM [Concomitant]
  3. METOPROLOL [Concomitant]
  4. CENTRUM SILVER [Concomitant]
  5. B12 [Concomitant]
  6. ANTIGLAUCOMA PREPARATIONS AND MIOTICS [Concomitant]

REACTIONS (1)
  - Macular degeneration [Not Recovered/Not Resolved]
